FAERS Safety Report 5649502-0 (Version None)
Quarter: 2008Q1

REPORT INFORMATION
  Report Type: 
  Country: None (occurrence: None)
  Receive Date: 20080304
  Receipt Date: 20080201
  Transmission Date: 20080703
  Serious: Yes (Other)
  Sender: FDA-Public Use
  Company Number: US-PFIZER INC-2007082552

PATIENT
  Sex: Female

DRUGS (2)
  1. LIPITOR [Suspect]
  2. STATINS [Suspect]

REACTIONS (1)
  - IMMOBILE [None]
